FAERS Safety Report 6862193-6 (Version None)
Quarter: 2010Q3

REPORT INFORMATION
  Report Type: 
  Country: None (occurrence: None)
  Receive Date: 20100719
  Receipt Date: 20100708
  Transmission Date: 20110219
  Serious: Yes (Hospitalization)
  Sender: FDA-Public Use
  Company Number: 2010US002674

PATIENT
  Age: 54 Year

DRUGS (1)
  1. LEXISCAN [Suspect]
     Indication: SCAN MYOCARDIAL PERFUSION
     Dosage: 1 DF, TOTAL DOSE, IV NOS
     Route: 042
     Dates: start: 20100707, end: 20100707

REACTIONS (2)
  - BLOOD PRESSURE FLUCTUATION [None]
  - CATATONIA [None]
